FAERS Safety Report 4491913-3 (Version None)
Quarter: 2004Q4

REPORT INFORMATION
  Report Type: 
  Country: None (occurrence: None)
  Receive Date: 20041029
  Receipt Date: 20041029
  Transmission Date: 20050328
  Serious: Yes (Disabling)
  Sender: FDA-Public Use
  Company Number: None

PATIENT
  Age: 65 Year
  Sex: Female
  Weight: 51.2565 kg

DRUGS (4)
  1. ENBREL [Suspect]
     Indication: RHEUMATOID ARTHRITIS
     Dosage: 25 MG BIW SUBCUTANEOUS
     Route: 058
     Dates: start: 20030303, end: 20040909
  2. FOSAMAX [Concomitant]
  3. ATENOLOL [Concomitant]
  4. LIPITOR [Concomitant]

REACTIONS (5)
  - AGEUSIA [None]
  - ATAXIA [None]
  - DIPLOPIA [None]
  - FEELING ABNORMAL [None]
  - VITH NERVE PARALYSIS [None]
